FAERS Safety Report 13695296 (Version 1)
Quarter: 2017Q2

REPORT INFORMATION
  Report Type: Spontaneous
  Country: RU (occurrence: RU)
  Receive Date: 20170627
  Receipt Date: 20170627
  Transmission Date: 20170830
  Serious: Yes (Other)
  Sender: FDA-Public Use
  Company Number: RU-ABBVIE-17P-251-2021380-00

PATIENT
  Sex: Female

DRUGS (1)
  1. KLACID SR [Suspect]
     Active Substance: CLARITHROMYCIN
     Indication: PERITONSILLAR ABSCESS
     Route: 065

REACTIONS (3)
  - Body temperature increased [Recovering/Resolving]
  - Condition aggravated [Recovering/Resolving]
  - Tonsillar disorder [Recovering/Resolving]
